FAERS Safety Report 17983102 (Version 6)
Quarter: 2024Q2

REPORT INFORMATION
  Report Type: Spontaneous
  Country: US (occurrence: US)
  Receive Date: 20200706
  Receipt Date: 20240419
  Transmission Date: 20240716
  Serious: Yes (Hospitalization, Other)
  Sender: FDA-Public Use
  Company Number: US-PFIZER INC-2020257080

PATIENT
  Age: 66 Year
  Sex: Female
  Weight: 68.04 kg

DRUGS (9)
  1. PREMARIN [Suspect]
     Active Substance: ESTROGENS, CONJUGATED
     Indication: Hormone replacement therapy
     Dosage: 0.625 MG, 1X/DAY (TAKE WITH WATER ONCE A DAY)
     Dates: start: 1993
  2. LEVOTHYROXINE [Concomitant]
     Active Substance: LEVOTHYROXINE\LEVOTHYROXINE SODIUM
     Indication: Thyroid disorder
     Dosage: 50 UG, 1X/DAY (STARTED TAKING A LONG TIME AGO, YEARS AGO)
  3. VITAMIN D3 [Concomitant]
     Active Substance: CHOLECALCIFEROL
     Indication: Renal failure
     Dosage: 2000 IU, 3X/DAY (STARTED TAKING MAYBE 2 YEARS)
  4. GABAPENTIN [Concomitant]
     Active Substance: GABAPENTIN
     Indication: Back pain
     Dosage: 800 MG, 3X/DAY (HAS BEEN TAKING FOR YEARS)
  5. PERCOCET [Concomitant]
     Active Substance: ACETAMINOPHEN\OXYCODONE HYDROCHLORIDE
     Indication: Pain
     Dosage: 10/325MG 4 TIMES A DAY AS NEEDED
  6. CITALOPRAM HYDROCHLORIDE [Concomitant]
     Active Substance: CITALOPRAM HYDROCHLORIDE
     Indication: Depression
     Dosage: 40 MG, 1X/DAY
     Dates: start: 2007
  7. SIMVASTATIN [Concomitant]
     Active Substance: SIMVASTATIN
     Indication: Blood cholesterol increased
     Dosage: 20 MG, 1X/DAY (STARTED TAKING WHEN SHE WAS YOUNG)
  8. ALPRAZOLAM [Concomitant]
     Active Substance: ALPRAZOLAM
     Indication: Antidepressant therapy
     Dosage: 0.5 MG, 1X/DAY AT BEDTIME
     Dates: start: 2007
  9. QUETIAPINE FUMARATE [Concomitant]
     Active Substance: QUETIAPINE FUMARATE
     Indication: Sleep disorder
     Dosage: 300 MG, 1X/DAY AT BEDTIME
     Route: 048
     Dates: start: 2007

REACTIONS (6)
  - Hypertension [Recovered/Resolved]
  - Renal failure [Unknown]
  - Malaise [Unknown]
  - Malaise [Unknown]
  - Dizziness [Unknown]
  - Fall [Unknown]

NARRATIVE: CASE EVENT DATE: 20200528
